FAERS Safety Report 16539537 (Version 3)
Quarter: 2019Q4

REPORT INFORMATION
  Report Type: Spontaneous
  Country: JP (occurrence: JP)
  Receive Date: 20190708
  Receipt Date: 20191114
  Transmission Date: 20200122
  Serious: Yes (Other)
  Sender: FDA-Public Use
  Company Number: JP-SAKK-2019SA180908AA

PATIENT
  Age: 63 Year
  Sex: Female
  Weight: 42 kg

DRUGS (5)
  1. IRINOTECAN [Concomitant]
     Active Substance: IRINOTECAN
     Indication: CHEMOTHERAPY
     Dosage: 200 MG, Q4W
     Route: 042
     Dates: start: 20190514
  2. LEVOFOLINATE CALCIUM [Concomitant]
     Active Substance: LEVOLEUCOVORIN CALCIUM
     Indication: CHEMOTHERAPY
     Dosage: 230 MG, Q4W
     Route: 042
     Dates: start: 20190514
  3. FLUOROURACIL. [Concomitant]
     Active Substance: FLUOROURACIL
     Dosage: 2700 MG, Q4W
     Route: 041
     Dates: start: 20190514
  4. ZALTRAP [Suspect]
     Active Substance: ZIV-AFLIBERCEPT
     Indication: CHEMOTHERAPY
     Dosage: 150 MG, 1X
     Route: 041
     Dates: start: 20190514, end: 20190514
  5. FLUOROURACIL. [Concomitant]
     Active Substance: FLUOROURACIL
     Indication: CHEMOTHERAPY
     Dosage: 400 MG, Q4W
     Route: 040
     Dates: start: 20190514

REACTIONS (3)
  - Haematoma infection [Recovered/Resolved]
  - Ulcer haemorrhage [Recovered/Resolved]
  - Abscess limb [Recovered/Resolved]

NARRATIVE: CASE EVENT DATE: 20190605
